FAERS Safety Report 7764264-9 (Version None)
Quarter: 2011Q3

REPORT INFORMATION
  Report Type: 
  Country: None (occurrence: None)
  Receive Date: 20110919
  Receipt Date: 20110912
  Transmission Date: 20111222
  Serious: Yes (Death, Life-Threatening, Hospitalization, Other)
  Sender: FDA-Public Use
  Company Number: 1040443

PATIENT
  Age: 64 Year
  Sex: Male
  Weight: 52.1 kg

DRUGS (3)
  1. MORPHINE SULFATE [Suspect]
     Indication: PRODUCT USED FOR UNKNOWN INDICATION
     Dosage: 1 EVERY 4 HOURS, SUBCUTANEOUS
     Route: 058
  2. SPIRONOLACTONE [Suspect]
     Indication: PRODUCT USED FOR UNKNOWN INDICATION
     Dosage: 100.0MG, 1 EVERY 1 DAY, ORAL
     Route: 048
  3. FUROSEMIDE [Suspect]
     Indication: PRODUCT USED FOR UNKNOWN INDICATION
     Dosage: 40.0MG, 1 EVERY 1 DAY, ORAL
     Route: 048

REACTIONS (1)
  - HEPATIC ENCEPHALOPATHY [None]
